FAERS Safety Report 14253896 (Version 1)
Quarter: 2017Q4

REPORT INFORMATION
  Report Type: Report from Study
  Country: GB (occurrence: GB)
  Receive Date: 20171206
  Receipt Date: 20171206
  Transmission Date: 20180321
  Serious: Yes (Other)
  Sender: FDA-Public Use
  Company Number: GB-VISTAPHARM, INC.-VER201711-001204

PATIENT
  Age: 24 Year
  Sex: Male

DRUGS (1)
  1. PREDNISOLONE. [Suspect]
     Active Substance: PREDNISOLONE
     Indication: TYPE 1 LEPRA REACTION

REACTIONS (2)
  - Immunosuppression [Recovered/Resolved]
  - Cellulitis [Recovered/Resolved]
